FAERS Safety Report 11363907 (Version 4)
Quarter: 2016Q1

REPORT INFORMATION
  Report Type: Report from Study
  Country: US (occurrence: US)
  Receive Date: 20150811
  Receipt Date: 20160329
  Transmission Date: 20160525
  Serious: Yes (Other)
  Sender: FDA-Public Use
  Company Number: US-AMGEN-USASP2015079411

PATIENT
  Age: 63 Year
  Sex: Male

DRUGS (1)
  1. NPLATE [Suspect]
     Active Substance: ROMIPLOSTIM
     Indication: PRODUCT USED FOR UNKNOWN INDICATION
     Dosage: UNK UNK, Q4WK
     Route: 065

REACTIONS (8)
  - Blood glucose increased [Unknown]
  - Autoimmune disorder [Unknown]
  - Hyperthyroidism [Unknown]
  - Autoimmune hepatitis [Unknown]
  - Protein total decreased [Unknown]
  - Blood albumin decreased [Unknown]
  - Platelet count abnormal [Unknown]
  - Protein urine present [Unknown]

NARRATIVE: CASE EVENT DATE: 201308
